FAERS Safety Report 12581093 (Version 1)
Quarter: 2016Q3

REPORT INFORMATION
  Report Type: Report from Study
  Country: BR (occurrence: BR)
  Receive Date: 20160721
  Receipt Date: 20160721
  Transmission Date: 20161109
  Serious: Yes (Hospitalization, Other)
  Sender: FDA-Public Use
  Company Number: BR-ABBVIE-16K-020-1678354-00

PATIENT
  Age: 64 Year
  Sex: Male
  Weight: 102 kg

DRUGS (10)
  1. ARAVA [Concomitant]
     Active Substance: LEFLUNOMIDE
     Indication: RHEUMATOID ARTHRITIS
     Route: 048
     Dates: start: 2013, end: 201511
  2. AMLODIPINE [Concomitant]
     Active Substance: AMLODIPINE BESYLATE
     Indication: HYPERTENSION
     Route: 048
     Dates: end: 201606
  3. ALPRAZOLAM. [Concomitant]
     Active Substance: ALPRAZOLAM
     Indication: INSOMNIA
     Route: 048
     Dates: start: 2014
  4. BESEROL [Concomitant]
     Indication: SPINAL PAIN
     Dosage: 2 OR 3 TABLETS
     Route: 048
     Dates: end: 2013
  5. HUMIRA [Suspect]
     Active Substance: ADALIMUMAB
     Indication: RHEUMATOID ARTHRITIS
     Route: 058
     Dates: start: 20150804
  6. LOSARTAN. [Concomitant]
     Active Substance: LOSARTAN
     Indication: HYPERTENSION
     Route: 048
     Dates: start: 2014, end: 201606
  7. PREDNISONE. [Concomitant]
     Active Substance: PREDNISONE
     Indication: RHEUMATOID ARTHRITIS
     Route: 048
     Dates: start: 2014
  8. ATENSINA [Concomitant]
     Active Substance: CLONIDINE
     Indication: HYPERTENSION
     Route: 048
     Dates: end: 201606
  9. IMURAN [Concomitant]
     Active Substance: AZATHIOPRINE
     Indication: ARTHRITIS
     Route: 048
     Dates: start: 201510, end: 201606
  10. PREDNISONE. [Suspect]
     Active Substance: PREDNISONE
     Indication: RHEUMATOID ARTHRITIS
     Route: 048
     Dates: start: 201601

REACTIONS (16)
  - Peripheral swelling [Not Recovered/Not Resolved]
  - Pain in extremity [Not Recovered/Not Resolved]
  - Depressed mood [Not Recovered/Not Resolved]
  - Dyspnoea [Not Recovered/Not Resolved]
  - Peripheral swelling [Recovering/Resolving]
  - Abdominal distension [Recovering/Resolving]
  - Lung disorder [Not Recovered/Not Resolved]
  - Vascular occlusion [Recovered/Resolved]
  - Cardiomegaly [Unknown]
  - Fatigue [Not Recovered/Not Resolved]
  - Renal disorder [Not Recovered/Not Resolved]
  - Pleural effusion [Not Recovered/Not Resolved]
  - Cardiac disorder [Not Recovered/Not Resolved]
  - Gait disturbance [Not Recovered/Not Resolved]
  - Discomfort [Not Recovered/Not Resolved]
  - Peripheral venous disease [Unknown]

NARRATIVE: CASE EVENT DATE: 201602
